FAERS Safety Report 14508381 (Version 1)
Quarter: 2018Q1

REPORT INFORMATION
  Report Type: Spontaneous
  Country: AT (occurrence: AT)
  Receive Date: 20180209
  Receipt Date: 20180209
  Transmission Date: 20180509
  Serious: Yes (Death, Other)
  Sender: FDA-Public Use
  Company Number: AT-CIPLA LTD.-2018US03484

PATIENT

DRUGS (18)
  1. ACTINOMYCIN D [Suspect]
     Active Substance: DACTINOMYCIN
     Indication: ATYPICAL TERATOID/RHABDOID TUMOUR OF CNS
     Dosage: UNK
     Route: 065
  2. CARBOPLATIN. [Suspect]
     Active Substance: CARBOPLATIN
     Indication: ATYPICAL TERATOID/RHABDOID TUMOUR OF CNS
     Dosage: UNK, HIGH-DOSE
     Route: 065
  3. CYCLOPHOSPHAMIDE. [Suspect]
     Active Substance: CYCLOPHOSPHAMIDE
     Indication: ATYPICAL TERATOID/RHABDOID TUMOUR OF CNS
     Dosage: UNK
     Route: 065
  4. IFOSFAMIDE. [Suspect]
     Active Substance: IFOSFAMIDE
     Indication: ATYPICAL TERATOID/RHABDOID TUMOUR OF CNS
     Dosage: UNK
     Route: 065
  5. DOXORUBICIN HYDROCHLORIDE. [Suspect]
     Active Substance: DOXORUBICIN HYDROCHLORIDE
     Indication: RHABDOID TUMOUR
  6. CYCLOPHOSPHAMIDE. [Suspect]
     Active Substance: CYCLOPHOSPHAMIDE
     Indication: RHABDOID TUMOUR
  7. ETOPOSIDE. [Suspect]
     Active Substance: ETOPOSIDE
     Indication: RHABDOID TUMOUR
  8. ETOPOSIDE. [Suspect]
     Active Substance: ETOPOSIDE
     Indication: ATYPICAL TERATOID/RHABDOID TUMOUR OF CNS
     Dosage: UNK, HIGH-DOSE
     Route: 065
  9. THIOTEPA. [Suspect]
     Active Substance: THIOTEPA
     Indication: ATYPICAL TERATOID/RHABDOID TUMOUR OF CNS
     Dosage: UNK
     Route: 065
  10. METHOTREXATE. [Suspect]
     Active Substance: METHOTREXATE
     Indication: ATYPICAL TERATOID/RHABDOID TUMOUR OF CNS
     Dosage: UNK
     Route: 065
  11. DOXORUBICIN HYDROCHLORIDE. [Suspect]
     Active Substance: DOXORUBICIN HYDROCHLORIDE
     Indication: ATYPICAL TERATOID/RHABDOID TUMOUR OF CNS
     Dosage: UNK
     Route: 065
  12. IFOSFAMIDE. [Suspect]
     Active Substance: IFOSFAMIDE
     Indication: RHABDOID TUMOUR
  13. VINCRISTINE [Suspect]
     Active Substance: VINCRISTINE
     Indication: ATYPICAL TERATOID/RHABDOID TUMOUR OF CNS
     Dosage: UNK
     Route: 065
  14. VINCRISTINE [Suspect]
     Active Substance: VINCRISTINE
     Indication: RHABDOID TUMOUR
  15. CARBOPLATIN. [Suspect]
     Active Substance: CARBOPLATIN
     Indication: RHABDOID TUMOUR
     Dosage: UNK
  16. METHOTREXATE. [Suspect]
     Active Substance: METHOTREXATE
     Indication: RHABDOID TUMOUR
  17. THIOTEPA. [Suspect]
     Active Substance: THIOTEPA
     Indication: RHABDOID TUMOUR
  18. ACTINOMYCIN D [Suspect]
     Active Substance: DACTINOMYCIN
     Indication: RHABDOID TUMOUR

REACTIONS (2)
  - Atypical teratoid/rhabdoid tumour of CNS [Fatal]
  - Malignant neoplasm progression [Unknown]
